FAERS Safety Report 6977046-2 (Version None)
Quarter: 2010Q3

REPORT INFORMATION
  Report Type: 
  Country: None (occurrence: None)
  Receive Date: 20100910
  Receipt Date: 20100903
  Transmission Date: 20110219
  Serious: Yes (Death, Hospitalization)
  Sender: FDA-Public Use
  Company Number: US-ROCHE-725792

PATIENT
  Age: 66 Year
  Sex: Female

DRUGS (7)
  1. BLINDED BEVACIZUMAB [Suspect]
     Indication: BREAST CANCER
     Dosage: RATE: OVER 30-90 MINUTES, ON DAY 1 OF CYCLE 1 TO CYCLE 4
     Route: 042
     Dates: start: 20100204
  2. BLINDED BEVACIZUMAB [Suspect]
     Dosage: RATE: OVER 30-90 MINUTES, ON DAY 1 OF CYCLE 5 TO CYCLE 8
     Route: 042
     Dates: end: 20100617
  3. PEGFILGRASTIM [Suspect]
     Indication: BREAST CANCER
     Dosage: ON DAY 2 OF CYCLE 1 - 4
     Route: 042
     Dates: start: 20100204, end: 20100326
  4. DOXORUBICIN HCL [Suspect]
     Indication: BREAST CANCER
     Dosage: ROUTE: IVP,FREQUENCY: DAY 1 OF CYLE 1 TO CYCLE 4
     Route: 042
     Dates: start: 20100204, end: 20100325
  5. CYCLOPHOSPHAMIDE [Suspect]
     Indication: BREAST CANCER
     Dosage: RATE: OVER 20-30 MINUTES, FREQUENCY: DAY1 OF CYCLE 1 TO CYCLE 4
     Route: 042
     Dates: start: 20100204, end: 20100325
  6. PACLITAXEL [Suspect]
     Indication: BREAST CANCER
     Dosage: RATE: OVER 1 HOUR, FREQUENCY: DAYS 1, 8 AND 15 OF CYCLE 5 - 8
     Route: 042
     Dates: end: 20100624
  7. DITROPAN [Concomitant]

REACTIONS (1)
  - CYSTITIS [None]
